FAERS Safety Report 4511526-4 (Version None)
Quarter: 2004Q4

REPORT INFORMATION
  Report Type: 
  Country: None (occurrence: None)
  Receive Date: 20041129
  Receipt Date: 20040910
  Transmission Date: 20050328
  Serious: No
  Sender: FDA-Public Use
  Company Number: US-BRISTOL-MYERS SQUIBB COMPANY-12699476

PATIENT
  Age: 66 Year
  Sex: Female
  Weight: 77 kg

DRUGS (5)
  1. ABILIFY [Suspect]
     Indication: DEPRESSION
     Dosage: STARTED 20-MAR-04 X 1 WK, THEN D/C, RE-STARTED 11-JUN-2004 + ONGOING
     Route: 048
     Dates: start: 20040611
  2. ABILIFY [Suspect]
     Indication: PARANOIA
     Dosage: STARTED 20-MAR-04 X 1 WK, THEN D/C, RE-STARTED 11-JUN-2004 + ONGOING
     Route: 048
     Dates: start: 20040611
  3. WELLBUTRIN XL [Concomitant]
  4. NEURONTIN [Concomitant]
  5. PREMARIN [Concomitant]

REACTIONS (1)
  - PSORIASIS [None]
